FAERS Safety Report 8824326 (Version 2)
Quarter: 2012Q4

REPORT INFORMATION
  Report Type: 
  Country: US (occurrence: US)
  Receive Date: 20121004
  Receipt Date: 20121124
  Transmission Date: 20130627
  Serious: Yes (Other)
  Sender: FDA-Public Use
  Company Number: US-BAYER-2012-100416

PATIENT
  Age: 39 Year
  Sex: Female
  Weight: 99.77 kg

DRUGS (9)
  1. YASMIN [Suspect]
  2. OCELLA [Suspect]
  3. BUTALBITAL, ACETAMINOPHEN + CAFFEINE [Concomitant]
  4. FLUOXETINE [Concomitant]
     Dosage: 20 mg, UNK
  5. FOLIC ACID [Concomitant]
     Dosage: 400 mg, QD
     Dates: start: 20100324
  6. PROZAC [Concomitant]
     Dosage: 20 mg, QD
     Dates: start: 20100324
  7. VITAMIN B12 [COBAMAMIDE] [Concomitant]
     Dosage: 1000 mcg/mL, once a month
     Dates: start: 20100324
  8. VENOFER [Concomitant]
     Dosage: 100 mg, twice a week
     Dates: start: 20100324
  9. LOESTRIN FE [Concomitant]

REACTIONS (1)
  - Deep vein thrombosis [Recovered/Resolved]
